FAERS Safety Report 8265376-6 (Version None)
Quarter: 2012Q2

REPORT INFORMATION
  Report Type: 
  Country: None (occurrence: None)
  Receive Date: 20120406
  Receipt Date: 20120322
  Transmission Date: 20120825
  Serious: Yes (Other)
  Sender: FDA-Public Use
  Company Number: DE-JUTA GMBH-2012-05869

PATIENT
  Age: 70 Year
  Sex: Female

DRUGS (6)
  1. AMIODARONE HCL [Suspect]
     Indication: ARRHYTHMIA
     Dosage: UNK
     Route: 065
  2. BISOPROLOL FUMARATE [Suspect]
     Indication: AORTIC VALVE REPLACEMENT
     Dosage: UNK
     Route: 065
  3. TERBINAFINE HCL [Suspect]
     Indication: TINEA INFECTION
     Dosage: UNK
     Route: 065
     Dates: start: 20050101
  4. LOSARTAN POTASSIUM [Suspect]
     Indication: AORTIC VALVE REPLACEMENT
     Dosage: UNK
     Route: 065
  5. TORSEMIDE [Suspect]
     Indication: AORTIC VALVE REPLACEMENT
     Dosage: UNK
     Route: 065
  6. PHENPROCOUMONE [Suspect]
     Indication: AORTIC VALVE REPLACEMENT

REACTIONS (2)
  - CUTANEOUS LUPUS ERYTHEMATOSUS [None]
  - IMPAIRED HEALING [None]
